FAERS Safety Report 10798415 (Version 3)
Quarter: 2015Q3

REPORT INFORMATION
  Report Type: Spontaneous
  Country: US (occurrence: US)
  Receive Date: 20150216
  Receipt Date: 20150717
  Transmission Date: 20151125
  Serious: Yes (Other)
  Sender: FDA-Public Use
  Company Number: US-GLAXOSMITHKLINE-US2015GSK020872

PATIENT
  Age: 77 Year
  Sex: Female

DRUGS (2)
  1. VOTRIENT [Suspect]
     Active Substance: PAZOPANIB HYDROCHLORIDE
     Indication: NEOPLASM MALIGNANT
     Dosage: 200 MG, U
     Route: 065
     Dates: start: 20140730
  2. VOTRIENT [Suspect]
     Active Substance: PAZOPANIB HYDROCHLORIDE
     Indication: LUNG NEOPLASM MALIGNANT

REACTIONS (7)
  - Gastrointestinal carcinoma [Unknown]
  - Diarrhoea [Unknown]
  - Malaise [Unknown]
  - Gastric ulcer [Unknown]
  - Gastroenteritis viral [Recovered/Resolved]
  - Gastric cancer [Unknown]
  - Vomiting [Unknown]

NARRATIVE: CASE EVENT DATE: 201502
